FAERS Safety Report 4444210-6 (Version None)
Quarter: 2004Q3

REPORT INFORMATION
  Report Type: 
  Country: None (occurrence: None)
  Receive Date: 20040902
  Receipt Date: 20040812
  Transmission Date: 20050211
  Serious: Yes (Congenital Anomaly)
  Sender: FDA-Public Use
  Company Number: US_0408104802

PATIENT

DRUGS (1)
  1. SARAFEM [Suspect]
     Dosage: UNK

REACTIONS (3)
  - ABORTION SPONTANEOUS [None]
  - DANDY-WALKER SYNDROME [None]
  - DRUG EXPOSURE DURING PREGNANCY [None]
